FAERS Safety Report 10861167 (Version 1)
Quarter: 2015Q1

REPORT INFORMATION
  Report Type: Spontaneous
  Country: US (occurrence: None)
  Receive Date: 20150218
  Receipt Date: 20150218
  Transmission Date: 20150721
  Serious: Yes (Hospitalization)
  Sender: FDA-Public Use
  Company Number: None

PATIENT
  Age: 12 Year
  Sex: Female
  Weight: 36 kg

DRUGS (5)
  1. CALCIUM [Concomitant]
     Active Substance: CALCIUM
  2. VIT B [Concomitant]
     Active Substance: VITAMINS
  3. PREDNISONE. [Concomitant]
     Active Substance: PREDNISONE
  4. MVI [Concomitant]
     Active Substance: VITAMINS
  5. INFLIXIMAB [Suspect]
     Active Substance: INFLIXIMAB
     Indication: CROHN^S DISEASE
     Dosage: 200MG EVERY 8-10 WEEKS INTRAVENOUS
     Route: 042

REACTIONS (4)
  - Psychogenic seizure [None]
  - Paraesthesia [None]
  - Vitamin B12 deficiency [None]
  - Hypoaesthesia [None]

NARRATIVE: CASE EVENT DATE: 20141117
